FAERS Safety Report 13023961 (Version 3)
Quarter: 2017Q1

REPORT INFORMATION
  Report Type: Spontaneous
  Country: FR (occurrence: FR)
  Receive Date: 20161213
  Receipt Date: 20170306
  Transmission Date: 20170428
  Serious: Yes (Death)
  Sender: FDA-Public Use
  Company Number: FR-JNJFOC-20161208453

PATIENT
  Age: 28 Year
  Sex: Female

DRUGS (15)
  1. RISPERDAL [Suspect]
     Active Substance: RISPERIDONE
     Indication: PRODUCT USED FOR UNKNOWN INDICATION
     Route: 048
     Dates: start: 20040305, end: 20040306
  2. THERALENE [Suspect]
     Active Substance: TRIMEPRAZINE
     Indication: PRODUCT USED FOR UNKNOWN INDICATION
     Route: 065
     Dates: start: 20040308, end: 20040311
  3. RISPERDAL [Suspect]
     Active Substance: RISPERIDONE
     Indication: PRODUCT USED FOR UNKNOWN INDICATION
     Route: 048
     Dates: start: 20040306, end: 20040312
  4. RISPERDAL [Suspect]
     Active Substance: RISPERIDONE
     Indication: PRODUCT USED FOR UNKNOWN INDICATION
     Route: 048
     Dates: start: 20040312, end: 20040314
  5. LOXAPAC [Suspect]
     Active Substance: LOXAPINE SUCCINATE
     Indication: PRODUCT USED FOR UNKNOWN INDICATION
     Dosage: 50-50-50-100 DROPS
     Route: 048
     Dates: start: 20040306, end: 20040312
  6. DAFALGAN [Suspect]
     Active Substance: ACETAMINOPHEN
     Indication: PRODUCT USED FOR UNKNOWN INDICATION
     Route: 048
     Dates: start: 20040314, end: 20040314
  7. PHOLCODINE [Suspect]
     Active Substance: PHOLCODINE
     Indication: PRODUCT USED FOR UNKNOWN INDICATION
     Route: 048
  8. HALDOL [Suspect]
     Active Substance: HALOPERIDOL
     Indication: HALLUCINATION
     Route: 048
     Dates: start: 20040301, end: 20040304
  9. HALDOL [Suspect]
     Active Substance: HALOPERIDOL
     Indication: PRODUCT USED FOR UNKNOWN INDICATION
     Route: 030
     Dates: start: 20040314, end: 20040314
  10. LOXAPAC [Suspect]
     Active Substance: LOXAPINE SUCCINATE
     Indication: AGITATION
     Route: 030
     Dates: start: 20040307
  11. IMOVANE [Suspect]
     Active Substance: ZOPICLONE
     Indication: PRODUCT USED FOR UNKNOWN INDICATION
     Route: 065
     Dates: start: 20040308, end: 20040308
  12. AKINETON [Suspect]
     Active Substance: BIPERIDEN HYDROCHLORIDE
     Indication: PRODUCT USED FOR UNKNOWN INDICATION
     Route: 065
     Dates: start: 20040305, end: 20040314
  13. LOXAPAC [Suspect]
     Active Substance: LOXAPINE SUCCINATE
     Indication: PRODUCT USED FOR UNKNOWN INDICATION
     Route: 048
     Dates: start: 20040305, end: 20040306
  14. TERCIAN [Suspect]
     Active Substance: CYAMEMAZINE
     Indication: PRODUCT USED FOR UNKNOWN INDICATION
     Route: 030
     Dates: start: 20040314, end: 20040314
  15. DEXTROPROPOXYPHENE [Suspect]
     Active Substance: PROPOXYPHENE HYDROCHLORIDE
     Indication: PRODUCT USED FOR UNKNOWN INDICATION
     Route: 065

REACTIONS (13)
  - Inappropriate schedule of drug administration [Unknown]
  - Mendelson^s syndrome [Fatal]
  - Fall [Unknown]
  - Incorrect dose administered [Unknown]
  - Dysphagia [Not Recovered/Not Resolved]
  - Coma [Fatal]
  - Dehydration [Fatal]
  - Pyrexia [Fatal]
  - Drug ineffective [Not Recovered/Not Resolved]
  - Off label use [Unknown]
  - Condition aggravated [Fatal]
  - Cardiac arrest [Fatal]
  - Injury [Unknown]

NARRATIVE: CASE EVENT DATE: 200403
